FAERS Safety Report 7643873-1 (Version None)
Quarter: 2011Q3

REPORT INFORMATION
  Report Type: 
  Country: None (occurrence: None)
  Receive Date: 20110729
  Receipt Date: 20101021
  Transmission Date: 20111222
  Serious: No
  Sender: FDA-Public Use
  Company Number: US-GLAXOSMITHKLINE-A0888055A

PATIENT
  Age: 44 Year
  Sex: Female

DRUGS (10)
  1. POTASSIUM CITRATE [Concomitant]
  2. DELESTROGEN [Concomitant]
  3. FLEXERIL [Concomitant]
  4. ASPIRIN [Concomitant]
  5. IMITREX [Suspect]
     Indication: MIGRAINE
     Dosage: 100MG AS REQUIRED
     Route: 048
     Dates: start: 20100920
  6. FLONASE [Concomitant]
  7. TRILEPTAL [Concomitant]
  8. CLONAZEPAM [Concomitant]
  9. LORATADINE [Concomitant]
  10. DARVOCET [Concomitant]

REACTIONS (3)
  - ERYTHEMA [None]
  - SOMNOLENCE [None]
  - FLUSHING [None]
